FAERS Safety Report 6515896-7 (Version None)
Quarter: 2009Q4

REPORT INFORMATION
  Report Type: 
  Country: None (occurrence: None)
  Receive Date: 20091211
  Receipt Date: 20081201
  Transmission Date: 20100525
  Serious: Yes (Other)
  Sender: FDA-Public Use
  Company Number: SPV1-2008-02640

PATIENT
  Age: 25 Year
  Sex: Male
  Weight: 155.1 kg

DRUGS (3)
  1. ADDERALL XR 10 [Suspect]
     Indication: ATTENTION DEFICIT/HYPERACTIVITY DISORDER
     Dosage: 20 MG, 1X/DAY: QD, ORAL
     Route: 048
     Dates: start: 20070101
  2. ADDERALL 10 [Concomitant]
  3. LAMICTAL [Concomitant]

REACTIONS (13)
  - CHEST PAIN [None]
  - DECREASED APPETITE [None]
  - DRY MOUTH [None]
  - FEELING HOT [None]
  - FOOT FRACTURE [None]
  - HYPERHIDROSIS [None]
  - LOGORRHOEA [None]
  - PAIN IN EXTREMITY [None]
  - PALPITATIONS [None]
  - PSYCHOMOTOR HYPERACTIVITY [None]
  - TREMOR [None]
  - WEIGHT DECREASED [None]
  - WOUND INFECTION STAPHYLOCOCCAL [None]
